FAERS Safety Report 5841098-3 (Version None)
Quarter: 2008Q3

REPORT INFORMATION
  Report Type: 
  Country: None (occurrence: None)
  Receive Date: 20080811
  Receipt Date: 20080811
  Transmission Date: 20090109
  Serious: No
  Sender: FDA-Public Use
  Company Number: None

PATIENT
  Sex: Female
  Weight: 61.2356 kg

DRUGS (2)
  1. LEVAQUIN [Suspect]
     Indication: BRONCHITIS
     Dosage: 500MG 1 DAILY
     Dates: start: 20080612, end: 20080707
  2. LEVAQUIN [Suspect]
     Indication: BRONCHITIS
     Dosage: 500MG 1 DAILY
     Dates: start: 20080622, end: 20080711

REACTIONS (3)
  - ABASIA [None]
  - LIMB INJURY [None]
  - PAIN IN EXTREMITY [None]
